FAERS Safety Report 7228276-6 (Version None)
Quarter: 2011Q1

REPORT INFORMATION
  Report Type: 
  Country: None (occurrence: None)
  Receive Date: 20110114
  Receipt Date: 20110106
  Transmission Date: 20110831
  Serious: Yes (Hospitalization)
  Sender: FDA-Public Use
  Company Number: US-GENENTECH-309762

PATIENT
  Sex: Male

DRUGS (12)
  1. LUCENTIS [Suspect]
     Indication: DIABETIC RETINAL OEDEMA
     Dosage: 0.5 MG, PRN
     Route: 031
     Dates: start: 20071126, end: 20100208
  2. RISPERDAL [Concomitant]
     Indication: PRODUCT USED FOR UNKNOWN INDICATION
     Dosage: UNK
     Dates: start: 20100101
  3. COGENTIN [Concomitant]
     Indication: PRODUCT USED FOR UNKNOWN INDICATION
     Dosage: UNK
     Dates: start: 20100801
  4. DEPAKOTE [Concomitant]
     Indication: PRODUCT USED FOR UNKNOWN INDICATION
     Dosage: UNK
     Dates: start: 20030101
  5. ZOCOR [Concomitant]
     Indication: PRODUCT USED FOR UNKNOWN INDICATION
     Dosage: UNK
     Dates: start: 19970101
  6. LANTUS [Concomitant]
     Indication: PRODUCT USED FOR UNKNOWN INDICATION
     Dosage: UNK
     Dates: start: 20020101
  7. WELLBUTRIN [Concomitant]
     Indication: PRODUCT USED FOR UNKNOWN INDICATION
     Dosage: UNK
     Dates: start: 20090101
  8. ZYRTEC [Concomitant]
     Indication: PRODUCT USED FOR UNKNOWN INDICATION
     Dosage: UNK
     Dates: start: 20090901
  9. ENALAPRIL [Concomitant]
     Indication: PROPHYLAXIS
     Dosage: UNK
     Dates: start: 19990101
  10. VITAMIN D [Concomitant]
     Indication: PRODUCT USED FOR UNKNOWN INDICATION
     Dosage: UNK
     Dates: start: 20090901
  11. ASPIRIN [Concomitant]
     Indication: PRODUCT USED FOR UNKNOWN INDICATION
     Dosage: UNK
     Dates: start: 19970101
  12. LUCENTIS [Suspect]
     Dosage: 2 MG, PRN
     Route: 031
     Dates: start: 20100312

REACTIONS (2)
  - BACK PAIN [None]
  - BLOOD PRESSURE INCREASED [None]
